FAERS Safety Report 6287314-8 (Version None)
Quarter: 2009Q3

REPORT INFORMATION
  Report Type: 
  Country: None (occurrence: None)
  Receive Date: 20090728
  Receipt Date: 20090717
  Transmission Date: 20100115
  Serious: Yes (Other)
  Sender: FDA-Public Use
  Company Number: US-PFIZER INC-2009214606

PATIENT
  Sex: Male
  Weight: 81.633 kg

DRUGS (8)
  1. ZOLOFT [Suspect]
     Indication: DEPRESSION
     Dosage: 50 MG, 1X/DAY
     Dates: start: 20080101
  2. CELEXA [Suspect]
  3. ADDERALL 10 [Suspect]
  4. RITALIN [Suspect]
     Dosage: 10 MG, UNK
  5. CIPROFLOXACIN [Suspect]
  6. VICODIN [Suspect]
  7. WELLBUTRIN [Concomitant]
     Dosage: UNK
  8. ZYRTEC [Concomitant]
     Dosage: UNK

REACTIONS (13)
  - ANXIETY [None]
  - DRUG WITHDRAWAL SYNDROME [None]
  - DYSGEUSIA [None]
  - EAR INFECTION [None]
  - EMOTIONAL DISORDER [None]
  - HYPERTENSION [None]
  - IRRITABILITY [None]
  - MALE SEXUAL DYSFUNCTION [None]
  - OVERDOSE [None]
  - PHYSICAL ASSAULT [None]
  - SUICIDE ATTEMPT [None]
  - VOMITING [None]
  - WEIGHT INCREASED [None]
